FAERS Safety Report 13927952 (Version 1)
Quarter: 2017Q3

REPORT INFORMATION
  Report Type: Spontaneous
  Country: US (occurrence: None)
  Receive Date: 20170831
  Receipt Date: 20170831
  Transmission Date: 20171127
  Serious: Yes (Other)
  Sender: FDA-Public Use
  Company Number: None

PATIENT
  Age: 74 Year
  Sex: Male

DRUGS (1)
  1. CAPECITABINE TAB 500MG [Suspect]
     Active Substance: CAPECITABINE
     Dosage: 2000MG BID X 14 DAYS PO
     Route: 048

REACTIONS (2)
  - Decreased appetite [None]
  - Platelet count increased [None]

NARRATIVE: CASE EVENT DATE: 20170830
